FAERS Safety Report 16567130 (Version 1)
Quarter: 2019Q3

REPORT INFORMATION
  Report Type: Spontaneous
  Country: AT (occurrence: AT)
  Receive Date: 20190712
  Receipt Date: 20190712
  Transmission Date: 20191004
  Serious: Yes (Other)
  Sender: FDA-Public Use
  Company Number: AT-009507513-1907AUT003998

PATIENT
  Age: 62 Year
  Sex: Male

DRUGS (7)
  1. KEYTRUDA [Suspect]
     Active Substance: PEMBROLIZUMAB
     Dosage: CYCLE NUMBER 2 PRIM
     Dates: start: 20190208, end: 20190208
  2. KEYTRUDA [Suspect]
     Active Substance: PEMBROLIZUMAB
     Dosage: CYCLE NUMBER 5 PRIM
     Dates: start: 20190412, end: 20190412
  3. KEYTRUDA [Suspect]
     Active Substance: PEMBROLIZUMAB
     Dosage: CYCLE NUMBER 4 PRIM
     Dates: start: 20190322, end: 20190322
  4. KEYTRUDA [Suspect]
     Active Substance: PEMBROLIZUMAB
     Dosage: CYCLE NUMBER 6, 6 WEEKS INTERVAL
     Dates: start: 20190513, end: 20190513
  5. KEYTRUDA [Suspect]
     Active Substance: PEMBROLIZUMAB
     Dosage: CYCLE NUMBER 1 PRIM
     Dates: start: 20190118, end: 20190118
  6. KEYTRUDA [Suspect]
     Active Substance: PEMBROLIZUMAB
     Dosage: CYCLE NUMBER 3 PRIM
     Dates: start: 20190301, end: 20190301
  7. KEYTRUDA [Suspect]
     Active Substance: PEMBROLIZUMAB
     Dosage: CYCLE NUMBER 7, 6 WEEKS INTERVAL
     Dates: start: 20190624, end: 20190624

REACTIONS (2)
  - Atrioventricular block first degree [Not Recovered/Not Resolved]
  - Atrial fibrillation [Not Recovered/Not Resolved]

NARRATIVE: CASE EVENT DATE: 20190323
